FAERS Safety Report 8090738-X (Version None)
Quarter: 2012Q1

REPORT INFORMATION
  Report Type: 
  Country: None (occurrence: None)
  Receive Date: 20120124
  Receipt Date: 20120110
  Transmission Date: 20120608
  Serious: Yes (Death)
  Sender: FDA-Public Use
  Company Number: 1000027282

PATIENT
  Age: 17 Year
  Sex: Female

DRUGS (18)
  1. MOUTHWASH (ETANOL) (ETHANOL) [Suspect]
     Dosage: ORAL
     Route: 048
  2. DEXTROMETHORPAN (DEXTROMETHORPHAN) [Suspect]
     Dosage: ORAL
     Route: 048
  3. IBUPROFEN [Suspect]
     Dosage: ORAL
     Route: 048
  4. MAGNESIUM (MAGNESIUM) [Suspect]
     Dosage: ORAL
     Route: 048
  5. PSEUDOEPHEDRINE HCL [Suspect]
     Dosage: ORAL
     Route: 048
  6. FLUOXETINE [Suspect]
     Dosage: ORAL
     Route: 048
  7. PHENOL (PHENOL) [Suspect]
     Dosage: ORAL
     Route: 048
  8. HALOPERIDOL [Suspect]
     Dosage: ORAL
     Route: 048
  9. ROSUVASTATIN [Suspect]
     Dosage: ORAL
     Route: 048
  10. ACETAMINOPHEN AND HYDROCODONE BITARTRATE [Suspect]
     Dosage: ORAL
     Route: 048
  11. LAXATINE UNKNOWN (SENNOSIDE A+B) [Suspect]
     Dosage: ORAL
     Route: 048
  12. CITALOPRAM HYDROBROMIDE [Suspect]
     Dosage: ORAL
     Route: 048
  13. NAPROXEN [Suspect]
     Dosage: ORAL
     Route: 048
  14. MONTELUKAST [Suspect]
     Dosage: ORAL
     Route: 048
  15. GUAIFENESIN [Suspect]
     Dosage: ORAL
     Route: 048
  16. LOPERAMIDE [Suspect]
     Dosage: ORAL
     Route: 048
  17. HYOSCYAMINE (HYOSCYAMINE) [Suspect]
     Dosage: ORAL
     Route: 048
  18. METHYLPHENIDATE HCL [Suspect]
     Dosage: ORAL
     Route: 048

REACTIONS (1)
  - COMPLETED SUICIDE [None]
